FAERS Safety Report 5740584-4 (Version None)
Quarter: 2008Q2

REPORT INFORMATION
  Report Type: 
  Country: None (occurrence: None)
  Receive Date: 20080516
  Receipt Date: 20080507
  Transmission Date: 20081010
  Serious: Yes (Congenital Anomaly)
  Sender: FDA-Public Use
  Company Number: A0680668A

PATIENT
  Sex: Male

DRUGS (5)
  1. PAXIL [Suspect]
     Indication: PANIC DISORDER
     Dosage: 20MG PER DAY
     Dates: start: 20000601, end: 20010501
  2. VITAMIN TAB [Concomitant]
     Dates: start: 20000601
  3. ZITHROMAX [Concomitant]
     Dates: start: 20000601, end: 20020301
  4. ZOLOFT [Concomitant]
     Dates: start: 20000601, end: 20030301
  5. PROCHLORPERAZINE [Concomitant]
     Dates: start: 20000601

REACTIONS (4)
  - AORTIC STENOSIS [None]
  - ASTHMA [None]
  - CARDIAC MURMUR [None]
  - DRUG EXPOSURE DURING PREGNANCY [None]
